FAERS Safety Report 7783040-4 (Version None)
Quarter: 2011Q3

REPORT INFORMATION
  Report Type: 
  Country: None (occurrence: None)
  Receive Date: 20110928
  Receipt Date: 20110923
  Transmission Date: 20111222
  Serious: No
  Sender: FDA-Public Use
  Company Number: US-PFIZER INC-2011227085

PATIENT
  Sex: Male

DRUGS (3)
  1. LANTUS [Suspect]
     Indication: TYPE 2 DIABETES MELLITUS
     Dosage: DAILY
     Route: 058
     Dates: start: 20090101, end: 20090101
  2. CLONIDINE [Suspect]
     Dosage: UNK
  3. AMLODIPINE BESYLATE [Suspect]
     Dosage: UNK

REACTIONS (3)
  - BLISTER [None]
  - PARAESTHESIA [None]
  - DERMATITIS [None]
